FAERS Safety Report 18409433 (Version 1)
Quarter: 2020Q4

REPORT INFORMATION
  Report Type: Spontaneous
  Country: GB (occurrence: GB)
  Receive Date: 20201021
  Receipt Date: 20201021
  Transmission Date: 20210114
  Serious: Yes (Disabling)
  Sender: FDA-Public Use
  Company Number: GB-TEVA-2020-GB-1839436

PATIENT
  Age: 68 Year
  Sex: Male

DRUGS (1)
  1. TEVA UK DEXAMETHASONE [Suspect]
     Active Substance: DEXAMETHASONE
     Indication: SUBDURAL HAEMATOMA
     Dosage: 2MG
     Route: 048
     Dates: start: 202005, end: 202005

REACTIONS (6)
  - Pharyngitis streptococcal [Recovering/Resolving]
  - Acne [Recovering/Resolving]
  - Hunger [Recovering/Resolving]
  - Abnormal weight gain [Recovering/Resolving]
  - Dysphagia [Recovering/Resolving]
  - Skin mass [Recovering/Resolving]
